FAERS Safety Report 9381019 (Version 3)
Quarter: 2013Q3

REPORT INFORMATION
  Report Type: Spontaneous
  Country: US (occurrence: US)
  Receive Date: 20130703
  Receipt Date: 20130820
  Transmission Date: 20140515
  Serious: No
  Sender: FDA-Public Use
  Company Number: US-B.I. PHARMACEUTICALS,INC./RIDGEFIELD-2013-BI-18477BP

PATIENT
  Age: 68 Year
  Sex: Male
  Weight: 88 kg

DRUGS (3)
  1. COMBIVENT [Suspect]
     Indication: CHRONIC OBSTRUCTIVE PULMONARY DISEASE
     Dosage: STRENGTH: 20 MCG / 100 MCG; DAILY DOSE: 80MCG/400MCG
     Route: 055
     Dates: start: 20130520
  2. PRO AIR [Concomitant]
     Indication: CHRONIC OBSTRUCTIVE PULMONARY DISEASE
     Route: 055
  3. ALBUTEROL [Concomitant]
     Indication: CHRONIC OBSTRUCTIVE PULMONARY DISEASE
     Dosage: 5 ML
     Route: 055

REACTIONS (5)
  - Retching [Recovered/Resolved]
  - Headache [Recovered/Resolved]
  - Product quality issue [Recovered/Resolved]
  - Product quality issue [Unknown]
  - Device issue [Unknown]
